FAERS Safety Report 6675633 (Version 3)
Quarter: 2015Q2

REPORT INFORMATION
  Report Type: Spontaneous
  Country: CN (occurrence: CN)
  Receive Date: 20080623
  Receipt Date: 20150421
  Transmission Date: 20150821
  Serious: Yes (Hospitalization, Other)
  Sender: FDA-Public Use
  Company Number: PHHY2008CN10688

PATIENT
  Age: 20 Year
  Sex: Male

DRUGS (2)
  1. SEBIVO [Suspect]
     Active Substance: TELBIVUDINE
     Indication: HEPATITIS B
     Dosage: 600 MG, QD
     Route: 048
     Dates: start: 200712, end: 200802
  2. PEGASYS [Concomitant]
     Active Substance: PEGINTERFERON ALFA-2A
     Indication: PRODUCT USED FOR UNKNOWN INDICATION
     Route: 065

REACTIONS (19)
  - Smooth muscle antibody positive [Unknown]
  - Blood creatine phosphokinase increased [Unknown]
  - Hypoaesthesia [Recovering/Resolving]
  - Asthenia [Recovering/Resolving]
  - Alanine aminotransferase increased [Unknown]
  - Aspartate aminotransferase increased [Unknown]
  - Gait disturbance [Not Recovered/Not Resolved]
  - Blood creatine phosphokinase MB increased [Unknown]
  - Myoglobin blood increased [Unknown]
  - Blood immunoglobulin E increased [Unknown]
  - C-reactive protein increased [Unknown]
  - Pain [Recovering/Resolving]
  - Mitochondrial cytopathy [Unknown]
  - Nerve injury [Unknown]
  - Blood lactate dehydrogenase increased [Unknown]
  - Pain in extremity [Recovering/Resolving]
  - Histone antibody positive [Unknown]
  - Blood uric acid increased [Unknown]
  - Alpha hydroxybutyrate dehydrogenase increased [Unknown]

NARRATIVE: CASE EVENT DATE: 20080528
